FAERS Safety Report 24281373 (Version 2)
Quarter: 2025Q2

REPORT INFORMATION
  Report Type: Spontaneous
  Country: US (occurrence: US)
  Receive Date: 20240904
  Receipt Date: 20250523
  Transmission Date: 20250717
  Serious: No
  Sender: MYLAN
  Company Number: US-MYLANLABS-2024M1078011

PATIENT
  Sex: Female
  Weight: 72.57 kg

DRUGS (4)
  1. XULANE [Suspect]
     Active Substance: ETHINYL ESTRADIOL\NORELGESTROMIN
     Indication: Dysmenorrhoea
     Dosage: 150/35 MICROGRAM, QD (PER DAY, ONCE A WEEK)
  2. XULANE [Suspect]
     Active Substance: ETHINYL ESTRADIOL\NORELGESTROMIN
     Dosage: 150/35 MICROGRAM, QD (PER DAY, ONCE A WEEK)
     Route: 062
  3. XULANE [Suspect]
     Active Substance: ETHINYL ESTRADIOL\NORELGESTROMIN
     Dosage: 150/35 MICROGRAM, QD (PER DAY, ONCE A WEEK)
     Route: 062
  4. XULANE [Suspect]
     Active Substance: ETHINYL ESTRADIOL\NORELGESTROMIN
     Dosage: 150/35 MICROGRAM, QD (PER DAY, ONCE A WEEK)

REACTIONS (2)
  - Off label use [Unknown]
  - Product adhesion issue [Unknown]
